FAERS Safety Report 8543664-3 (Version None)
Quarter: 2012Q3

REPORT INFORMATION
  Report Type: 
  Country: None (occurrence: None)
  Receive Date: 20120717
  Receipt Date: 20120703
  Transmission Date: 20120928
  Serious: Yes (Hospitalization)
  Sender: FDA-Public Use
  Company Number: 2012-3018

PATIENT
  Age: 75 Year
  Sex: Male

DRUGS (1)
  1. SOMATULINE DEPOT [Suspect]
     Indication: CARCINOID TUMOUR
     Dosage: 60 MG (60 MG,1 IN 28 D),SUBCUTANEOUS
     Route: 058
     Dates: start: 20091029

REACTIONS (5)
  - ASTHENIA [None]
  - DYSPNOEA [None]
  - CARCINOID TUMOUR [None]
  - HAEMOGLOBIN DECREASED [None]
  - NEOPLASM PROGRESSION [None]
